FAERS Safety Report 18438351 (Version 1)
Quarter: 2020Q4

REPORT INFORMATION
  Report Type: Spontaneous
  Country: AU (occurrence: AU)
  Receive Date: 20201028
  Receipt Date: 20201028
  Transmission Date: 20210114
  Serious: Yes (Other)
  Sender: FDA-Public Use
  Company Number: AU-GUERBET-AU-20200225

PATIENT
  Age: 57 Year
  Sex: Male
  Weight: 83 kg

DRUGS (8)
  1. OPTIRAY 350 [Suspect]
     Active Substance: IOVERSOL
     Indication: COMPUTERISED TOMOGRAM ABDOMEN
  2. MOBIC [Concomitant]
     Active Substance: MELOXICAM
     Indication: ANTIINFLAMMATORY THERAPY
     Route: 065
  3. XELJANZ [Concomitant]
     Active Substance: TOFACITINIB CITRATE
     Indication: RHEUMATOID ARTHRITIS
     Route: 065
  4. SOMAC [Concomitant]
     Active Substance: PANTOPRAZOLE SODIUM
     Indication: GASTROOESOPHAGEAL REFLUX DISEASE
     Route: 065
  5. OPTIRAY 350 [Suspect]
     Active Substance: IOVERSOL
     Indication: COMPUTERISED TOMOGRAM NECK
  6. OPTIRAY 350 [Suspect]
     Active Substance: IOVERSOL
     Indication: COMPUTERISED TOMOGRAM THORAX
     Route: 042
     Dates: start: 20201016, end: 20201016
  7. OPTIRAY 350 [Suspect]
     Active Substance: IOVERSOL
     Indication: COMPUTERISED TOMOGRAM PELVIS
  8. VITAMIN B [Concomitant]
     Active Substance: VITAMIN B
     Indication: PROBIOTIC THERAPY
     Route: 065

REACTIONS (5)
  - Blood pressure increased [Recovering/Resolving]
  - Mouth swelling [Recovered/Resolved]
  - Pruritus [Recovered/Resolved]
  - Pharyngeal hypoaesthesia [Recovered/Resolved]
  - Tachycardia [Recovered/Resolved]

NARRATIVE: CASE EVENT DATE: 20201016
